FAERS Safety Report 6965352-7 (Version None)
Quarter: 2010Q3

REPORT INFORMATION
  Report Type: 
  Country: None (occurrence: None)
  Receive Date: 20100903
  Receipt Date: 20100826
  Transmission Date: 20110219
  Serious: Yes (Death, Other)
  Sender: FDA-Public Use
  Company Number: US-PFIZER INC-2010091186

PATIENT
  Sex: Female
  Weight: 84.821 kg

DRUGS (1)
  1. REVATIO [Suspect]
     Indication: PULMONARY ARTERIAL HYPERTENSION
     Dosage: 20 MG, UNK

REACTIONS (4)
  - DIABETES MELLITUS [None]
  - DISEASE PROGRESSION [None]
  - HYPERTENSION [None]
  - PULMONARY HYPERTENSION [None]
